FAERS Safety Report 19814206 (Version 1)
Quarter: 2021Q3

REPORT INFORMATION
  Report Type: Spontaneous
  Country: US (occurrence: US)
  Receive Date: 20210910
  Receipt Date: 20210910
  Transmission Date: 20211014
  Serious: Yes (Hospitalization)
  Sender: FDA-Public Use
  Company Number: None

PATIENT
  Age: 60 Year
  Sex: Male
  Weight: 115.5 kg

DRUGS (2)
  1. CASIRIVIMAB 120MG/ML [Suspect]
     Active Substance: CASIRIVIMAB
     Indication: COVID-19
     Route: 042
  2. IMDEVIMAB 120MG/ML [Suspect]
     Active Substance: IMDEVIMAB

REACTIONS (5)
  - Pallor [None]
  - Blood glucose decreased [None]
  - Hyperhidrosis [None]
  - Blood pressure systolic decreased [None]
  - Heart rate decreased [None]

NARRATIVE: CASE EVENT DATE: 20210830
